FAERS Safety Report 5135395-7 (Version None)
Quarter: 2006Q4

REPORT INFORMATION
  Report Type: 
  Country: None (occurrence: None)
  Receive Date: 20061024
  Receipt Date: 20061024
  Transmission Date: 20070319
  Serious: Yes (Other)
  Sender: FDA-Public Use
  Company Number: None

PATIENT
  Sex: Male
  Weight: 22.6799 kg

DRUGS (1)
  1. SINGULAIR [Suspect]
     Indication: ASTHMA
     Dosage: 1 DAY PO
     Route: 048
     Dates: start: 20061017, end: 20061022

REACTIONS (7)
  - BRONCHITIS [None]
  - COUGH [None]
  - DRUG DISPENSING ERROR [None]
  - FEELING HOT [None]
  - INCORRECT DOSE ADMINISTERED [None]
  - MEDICATION ERROR [None]
  - RHINORRHOEA [None]
